FAERS Safety Report 6145359 (Version 3)
Quarter: 2014Q3

REPORT INFORMATION
  Report Type: Spontaneous
  Country: JP (occurrence: JP)
  Receive Date: 20061011
  Receipt Date: 20140819
  Transmission Date: 20150326
  Serious: Yes (Other)
  Sender: FDA-Public Use
  Company Number: PHBS2006JP15181

PATIENT
  Age: 66 Year
  Sex: Male

DRUGS (1)
  1. GLIVEC [Suspect]
     Active Substance: IMATINIB MESYLATE
     Route: 048

REACTIONS (3)
  - Myelodysplastic syndrome [Not Recovered/Not Resolved]
  - Pancytopenia [Unknown]
  - Cytogenetic abnormality [Unknown]
